FAERS Safety Report 24722500 (Version 2)
Quarter: 2025Q1

REPORT INFORMATION
  Report Type: Spontaneous
  Country: US (occurrence: US)
  Receive Date: 20241211
  Receipt Date: 20250108
  Transmission Date: 20250409
  Serious: Yes (Hospitalization, Other)
  Sender: BRISTOL-MYERS SQUIBB COMPANY
  Company Number: US-BRISTOL-MYERS SQUIBB COMPANY-2024-190295

PATIENT
  Age: 80 Year
  Sex: Male
  Weight: 70.8 kg

DRUGS (3)
  1. ELIQUIS [Suspect]
     Active Substance: APIXABAN
     Indication: Product used for unknown indication
     Dosage: TAKE 0.5 TABLETS (2.5MG) BY MOUTH IN THEMORNING AND ATBEDTIME
     Route: 048
     Dates: start: 20191029
  2. VYNDAMAX [Suspect]
     Active Substance: TAFAMIDIS
     Indication: Cardiac amyloidosis
     Dosage: TAKE 61 MG BY MOUTH IN THE MORNING, QUANTITY #30 CAPSULES (30 DAYS)
     Route: 048
     Dates: start: 20220503, end: 20241122
  3. TAFAMIDIS [Suspect]
     Active Substance: TAFAMIDIS
     Indication: Cardiac amyloidosis
     Route: 048
     Dates: start: 201907

REACTIONS (5)
  - Cardiac failure [Unknown]
  - COVID-19 pneumonia [Unknown]
  - Pneumonia [Unknown]
  - Cardiac failure acute [Unknown]
  - Off label use [Unknown]
